FAERS Safety Report 20996580 (Version 6)
Quarter: 2023Q1

REPORT INFORMATION
  Report Type: Other
  Country: JP (occurrence: JP)
  Receive Date: 20220623
  Receipt Date: 20230307
  Transmission Date: 20230418
  Serious: Yes (Hospitalization, Other)
  Sender: FDA-Public Use
  Company Number: JP-CHUGAI-2022005806

PATIENT
  Age: 68 Year
  Sex: Male
  Weight: 63.5 kg

DRUGS (21)
  1. ATEZOLIZUMAB [Suspect]
     Active Substance: ATEZOLIZUMAB
     Indication: Hepatocellular carcinoma
     Dosage: 1200 MILLIGRAM, SINGLE
     Route: 041
     Dates: start: 20211215, end: 20211215
  2. ATEZOLIZUMAB [Suspect]
     Active Substance: ATEZOLIZUMAB
     Route: 041
     Dates: start: 20220112, end: 20220202
  3. ATEZOLIZUMAB [Suspect]
     Active Substance: ATEZOLIZUMAB
     Dosage: 1200 MILLIGRAM
     Route: 041
     Dates: start: 20220302, end: 20220413
  4. ATEZOLIZUMAB [Suspect]
     Active Substance: ATEZOLIZUMAB
     Dosage: 1200 MILLIGRAM, SINGLE
     Route: 041
     Dates: start: 20220511, end: 20220511
  5. BEVACIZUMAB [Suspect]
     Active Substance: BEVACIZUMAB
     Indication: Hepatocellular carcinoma
     Dosage: 930 MILLIGRAM, SINGLE
     Route: 041
     Dates: start: 20211215, end: 20211215
  6. BEVACIZUMAB [Suspect]
     Active Substance: BEVACIZUMAB
     Dosage: 930 MILLIGRAM, SINGLE
     Route: 041
     Dates: start: 20220112, end: 20220112
  7. BEVACIZUMAB [Suspect]
     Active Substance: BEVACIZUMAB
     Dosage: 930 MILLIGRAM, SINGLE
     Route: 041
     Dates: start: 20220413, end: 20220413
  8. AMLODIPINE BESYLATE [Concomitant]
     Active Substance: AMLODIPINE BESYLATE
     Indication: Hypertension
     Dosage: UNK UNK, QD
     Route: 048
     Dates: start: 20210224
  9. ASPIRIN [Concomitant]
     Active Substance: ASPIRIN
     Indication: Aortic valve stenosis
     Dosage: UNK, QD
     Route: 048
     Dates: start: 20190917
  10. NIFEDIPINE [Concomitant]
     Active Substance: NIFEDIPINE
     Indication: Hypertension
     Dosage: UNK, QD
     Route: 048
     Dates: start: 20190917
  11. GLIMEPIRIDE [Concomitant]
     Active Substance: GLIMEPIRIDE
     Indication: Diabetes mellitus
     Dosage: UNK, QD
     Route: 048
     Dates: start: 20190917
  12. EXFORGE [Concomitant]
     Active Substance: AMLODIPINE BESYLATE\VALSARTAN
     Indication: Hypertension
     Dosage: UNK, QD
     Route: 048
     Dates: start: 20200625
  13. JANUVIA [Concomitant]
     Active Substance: SITAGLIPTIN PHOSPHATE
     Indication: Diabetes mellitus
     Dosage: UNK, QD
     Route: 048
     Dates: start: 20190917
  14. ROSUVASTATIN CALCIUM [Concomitant]
     Active Substance: ROSUVASTATIN CALCIUM
     Indication: Hypercholesterolaemia
     Dosage: UNK, QD
     Route: 048
     Dates: start: 20200625
  15. METHIMAZOLE [Concomitant]
     Active Substance: METHIMAZOLE
     Indication: Hyperthyroidism
     Dosage: UNK, QD
     Route: 048
     Dates: start: 20190917
  16. RABEPRAZOLE SODIUM [Concomitant]
     Active Substance: RABEPRAZOLE SODIUM
     Indication: Gastric ulcer
     Dosage: UNK, QD
     Route: 048
     Dates: start: 20190917
  17. CLOPIDOGREL BISULFATE [Concomitant]
     Active Substance: CLOPIDOGREL BISULFATE
     Indication: Aortic valve stenosis
     Dosage: UNK, QD
     Route: 048
     Dates: start: 20200625
  18. SODIUM FERROUS CITRATE [Concomitant]
     Active Substance: SODIUM FERROUS CITRATE
     Indication: Anaemia
     Dosage: UNK, QD
     Route: 048
     Dates: start: 20211116
  19. BIO-THREE [Concomitant]
     Active Substance: HERBALS
     Dosage: UNK, BID
     Route: 048
     Dates: start: 20190917
  20. NAFTOPIDIL [Concomitant]
     Active Substance: NAFTOPIDIL
     Indication: Benign prostatic hyperplasia
     Dosage: UNK, QD
     Route: 048
     Dates: start: 20190917
  21. DUTASTERIDE [Concomitant]
     Active Substance: DUTASTERIDE
     Indication: Benign prostatic hyperplasia
     Dosage: UNK, QD
     Route: 048
     Dates: start: 20190917

REACTIONS (4)
  - Pyrexia [Not Recovered/Not Resolved]
  - Interstitial lung disease [Recovering/Resolving]
  - Proteinuria [Recovered/Resolved]
  - Hypertension [Not Recovered/Not Resolved]

NARRATIVE: CASE EVENT DATE: 20220202
